FAERS Safety Report 18035802 (Version 1)
Quarter: 2020Q3

REPORT INFORMATION
  Report Type: Spontaneous
  Country: US (occurrence: US)
  Receive Date: 20200717
  Receipt Date: 20200717
  Transmission Date: 20201103
  Serious: Yes (Death)
  Sender: FDA-Public Use
  Company Number: None

PATIENT
  Age: 76 Year
  Sex: Female

DRUGS (9)
  1. MELPHALAN. [Suspect]
     Active Substance: MELPHALAN
     Indication: PLASMA CELL MYELOMA
     Dosage: ?          OTHER FREQUENCY:D DAYS 1?7 Q 4WK;?
     Route: 048
     Dates: start: 20200325, end: 20200701
  2. PRESERVISION [Concomitant]
     Active Substance: MINERALS\VITAMINS
  3. DAPSONE. [Concomitant]
     Active Substance: DAPSONE
  4. K DUR [Concomitant]
  5. VALCYTE [Concomitant]
     Active Substance: VALGANCICLOVIR HYDROCHLORIDE
  6. VITAMIN C [Concomitant]
     Active Substance: ASCORBIC ACID
  7. DARZALEX [Concomitant]
     Active Substance: DARATUMUMAB
  8. PREDNISONE. [Concomitant]
     Active Substance: PREDNISONE
  9. VELCADE [Concomitant]
     Active Substance: BORTEZOMIB

REACTIONS (1)
  - Death [None]

NARRATIVE: CASE EVENT DATE: 20200701
